FAERS Safety Report 13682663 (Version 2)
Quarter: 2017Q2

REPORT INFORMATION
  Report Type: Spontaneous
  Country: US (occurrence: US)
  Receive Date: 20170623
  Receipt Date: 20170623
  Transmission Date: 20170830
  Serious: No
  Sender: FDA-Public Use
  Company Number: US-MALLINCKRODT-T201604196

PATIENT
  Age: 69 Year
  Sex: Male

DRUGS (6)
  1. ALLOPURINOL. [Concomitant]
     Active Substance: ALLOPURINOL
  2. H.P. ACTHAR [Suspect]
     Active Substance: CORTICOTROPIN
     Indication: HYPERTENSION
     Dosage: 40 UNITS/0.5 ML EVERY 72 HOURS
     Route: 058
     Dates: start: 201606
  3. METHOCARBAMOL. [Concomitant]
     Active Substance: METHOCARBAMOL
  4. FENTANYL. [Concomitant]
     Active Substance: FENTANYL
  5. ATENOLOL. [Concomitant]
     Active Substance: ATENOLOL
  6. OXYCODONE/APAP [Concomitant]
     Active Substance: ACETAMINOPHEN\OXYCODONE HYDROCHLORIDE

REACTIONS (3)
  - Abdominal pain upper [Recovered/Resolved]
  - Off label use [Not Recovered/Not Resolved]
  - Dizziness [Recovered/Resolved]

NARRATIVE: CASE EVENT DATE: 201606
